FAERS Safety Report 21083575 (Version 4)
Quarter: 2023Q1

REPORT INFORMATION
  Report Type: Report from Study
  Country: US (occurrence: US)
  Receive Date: 20220714
  Receipt Date: 20230112
  Transmission Date: 20230417
  Serious: Yes (Hospitalization, Other)
  Sender: FDA-Public Use
  Company Number: US-TAKEDA-2022TUS038953

PATIENT
  Sex: Female

DRUGS (4)
  1. TEDUGLUTIDE [Suspect]
     Active Substance: TEDUGLUTIDE
     Indication: Short-bowel syndrome
     Dosage: 3.13 MILLIGRAM, QD
     Route: 058
     Dates: start: 20220429
  2. TEDUGLUTIDE [Suspect]
     Active Substance: TEDUGLUTIDE
     Indication: Short-bowel syndrome
     Dosage: 3.13 MILLIGRAM, QD
     Route: 058
     Dates: start: 20220429
  3. TEDUGLUTIDE [Suspect]
     Active Substance: TEDUGLUTIDE
     Indication: Short-bowel syndrome
     Dosage: 3.13 MILLIGRAM, QD
     Route: 058
     Dates: start: 20220429
  4. TEDUGLUTIDE [Suspect]
     Active Substance: TEDUGLUTIDE
     Indication: Short-bowel syndrome
     Dosage: 3.13 MILLIGRAM, QD
     Route: 058
     Dates: start: 20220429

REACTIONS (16)
  - Pneumonia aspiration [Unknown]
  - Small intestinal obstruction [Unknown]
  - Pyrexia [Unknown]
  - Abdominal adhesions [Unknown]
  - Appetite disorder [Unknown]
  - Weight decreased [Unknown]
  - Constipation [Unknown]
  - Diarrhoea [Unknown]
  - Muscle spasms [Unknown]
  - Pain [Unknown]
  - Weight increased [Unknown]
  - Staphylococcal infection [Unknown]
  - Abdominal distension [Unknown]
  - Nausea [Unknown]
  - Vomiting [Unknown]
  - Product dose omission issue [Unknown]
